FAERS Safety Report 9585237 (Version 1)
Quarter: 2013Q4

REPORT INFORMATION
  Report Type: Spontaneous
  Country: US (occurrence: US)
  Receive Date: 20131002
  Receipt Date: 20131002
  Transmission Date: 20140711
  Serious: No
  Sender: FDA-Public Use
  Company Number: US-AMGEN-USASP2013062857

PATIENT
  Age: 58 Year
  Sex: Female
  Weight: 56.69 kg

DRUGS (11)
  1. ENBREL [Suspect]
     Indication: PRODUCT USED FOR UNKNOWN INDICATION
     Dosage: 50 MG, QWK
     Route: 058
     Dates: start: 20130308
  2. METHOTREXATE [Concomitant]
     Dosage: 20 MG, UNK
  3. OXYCODONE [Concomitant]
     Dosage: 10 MG, UNK
  4. MULTICAPS [Concomitant]
     Dosage: UNK
  5. MOBIC [Concomitant]
     Dosage: 15 MG, UNK
  6. LIPITOR [Concomitant]
     Dosage: 10 MG, UNK
  7. METOPROLOL [Concomitant]
     Dosage: 200 MG, UNK (ER)
  8. LASIX                              /00032601/ [Concomitant]
     Dosage: 20 MG, UNK
  9. VICODIN [Concomitant]
     Dosage: UNK (5-500 MG)
  10. FLEXERIL                           /00428402/ [Concomitant]
     Dosage: 5 MG, UNK
  11. MELOXICAM [Concomitant]
     Dosage: 7.5 MG, UNK

REACTIONS (5)
  - Headache [Unknown]
  - Rhinorrhoea [Unknown]
  - Sneezing [Unknown]
  - Injection site reaction [Unknown]
  - Injection site urticaria [Unknown]
